FAERS Safety Report 8610470-0 (Version None)
Quarter: 2012Q3

REPORT INFORMATION
  Report Type: 
  Country: None (occurrence: None)
  Receive Date: 20120822
  Receipt Date: 20120816
  Transmission Date: 20120928
  Serious: No
  Sender: FDA-Public Use
  Company Number: US-PFIZER INC-2012202122

PATIENT
  Sex: Female

DRUGS (1)
  1. PANTOPRAZOLE [Suspect]
     Dosage: UNK
     Dates: start: 20120801

REACTIONS (4)
  - FLATULENCE [None]
  - DIARRHOEA [None]
  - CONSTIPATION [None]
  - ABDOMINAL PAIN UPPER [None]
